FAERS Safety Report 10262113 (Version 1)
Quarter: 2014Q2

REPORT INFORMATION
  Report Type: Spontaneous
  Country: US (occurrence: None)
  Receive Date: 20140624
  Receipt Date: 20140624
  Transmission Date: 20141212
  Serious: Yes (Other)
  Sender: FDA-Public Use
  Company Number: None

PATIENT
  Age: 8 Year
  Sex: Female
  Weight: 18.6 kg

DRUGS (1)
  1. TRILEPTAL 300MG [Suspect]
     Indication: EPILEPSY
     Dosage: 1, BID, GT
     Route: 048

REACTIONS (4)
  - Therapeutic response changed [None]
  - Product substitution issue [None]
  - Convulsion [None]
  - Condition aggravated [None]
